FAERS Safety Report 19661681 (Version 1)
Quarter: 2021Q3

REPORT INFORMATION
  Report Type: Spontaneous
  Country: FR (occurrence: FR)
  Receive Date: 20210805
  Receipt Date: 20210805
  Transmission Date: 20211014
  Serious: Yes (Death)
  Sender: FDA-Public Use
  Company Number: FR-TEVA-2021-FR-1939218

PATIENT
  Age: 28 Year
  Sex: Male

DRUGS (7)
  1. DIACETYLMORPHINE [Suspect]
     Active Substance: DIAMORPHINE
     Dosage: UNSPECIFIED
     Route: 065
     Dates: end: 2021
  2. OXAZEPAM. [Suspect]
     Active Substance: OXAZEPAM
     Dosage: UNSPECIFIED
     Route: 045
     Dates: end: 2021
  3. ZOPICLONE [Suspect]
     Active Substance: ZOPICLONE
     Dosage: UNSPECIFIED
     Route: 065
     Dates: end: 2021
  4. MORPHINE [Suspect]
     Active Substance: MORPHINE
     Dosage: UNSPECIFIED
     Route: 065
     Dates: end: 2021
  5. CODEINE [Suspect]
     Active Substance: CODEINE
     Dosage: UNSPECIFIED
     Route: 065
     Dates: end: 2021
  6. CHLORHYDRATE DE TRAMADOL [Suspect]
     Active Substance: TRAMADOL HYDROCHLORIDE
     Dosage: UNSPECIFIED
     Route: 065
     Dates: end: 2021
  7. CYAMEMAZINE [Suspect]
     Active Substance: CYAMEMAZINE
     Dosage: UNSPECIFIED
     Route: 065
     Dates: end: 2021

REACTIONS (2)
  - Drug abuse [Fatal]
  - Asphyxia [Fatal]

NARRATIVE: CASE EVENT DATE: 2021
